FAERS Safety Report 16372239 (Version 1)
Quarter: 2019Q2

REPORT INFORMATION
  Report Type: Spontaneous
  Country: IN (occurrence: IN)
  Receive Date: 20190530
  Receipt Date: 20190530
  Transmission Date: 20190711
  Serious: Yes (Other)
  Sender: FDA-Public Use
  Company Number: IN-PFIZER INC-2019227153

PATIENT

DRUGS (1)
  1. PALBACE [Suspect]
     Active Substance: PALBOCICLIB

REACTIONS (2)
  - Leukopenia [Unknown]
  - Hernia [Unknown]
